FAERS Safety Report 18741585 (Version 4)
Quarter: 2021Q2

REPORT INFORMATION
  Report Type: Spontaneous
  Country: ML (occurrence: ML)
  Receive Date: 20210114
  Receipt Date: 20210603
  Transmission Date: 20210717
  Serious: Yes (Death, Hospitalization, Other)
  Sender: FDA-Public Use
  Company Number: NVSC2021ML007219

PATIENT
  Age: 34 Year
  Sex: Male
  Weight: 93 kg

DRUGS (1)
  1. GLIVEC [Suspect]
     Active Substance: IMATINIB MESYLATE
     Indication: CHRONIC MYELOID LEUKAEMIA
     Dosage: 400 MG (4X100 MG)
     Route: 065

REACTIONS (6)
  - Pain [Fatal]
  - COVID-19 [Recovered/Resolved]
  - Anaemia [Fatal]
  - Pyrexia [Fatal]
  - Thrombocytopenia [Fatal]
  - General physical health deterioration [Unknown]

NARRATIVE: CASE EVENT DATE: 20201212
